FAERS Safety Report 25076122 (Version 1)
Quarter: 2025Q1

REPORT INFORMATION
  Report Type: Report from Study
  Country: US (occurrence: US)
  Receive Date: 20250313
  Receipt Date: 20250313
  Transmission Date: 20250408
  Serious: Yes (Death, Other)
  Sender: GILEAD
  Company Number: US-GILEAD-2025-0707235

PATIENT
  Age: 73 Year
  Sex: Male

DRUGS (5)
  1. BREXUCABTAGENE AUTOLEUCEL [Suspect]
     Active Substance: BREXUCABTAGENE AUTOLEUCEL
     Indication: Non-Hodgkin^s lymphoma
     Route: 042
  2. CYCLOPHOSPHAMIDE [Concomitant]
     Active Substance: CYCLOPHOSPHAMIDE
     Indication: Lymphodepletion
  3. FLUDARABINE [Concomitant]
     Active Substance: FLUDARABINE PHOSPHATE
     Indication: Lymphodepletion
  4. IBRUTINIB [Concomitant]
     Active Substance: IBRUTINIB
     Indication: Non-Hodgkin^s lymphoma
  5. VENETOCLAX [Concomitant]
     Active Substance: VENETOCLAX
     Indication: Non-Hodgkin^s lymphoma

REACTIONS (2)
  - Non-Hodgkin^s lymphoma [Fatal]
  - Basal cell carcinoma [Unknown]
